FAERS Safety Report 8972940 (Version 1)
Quarter: 2012Q4

REPORT INFORMATION
  Report Type: 
  Country: US (occurrence: US)
  Receive Date: 20121218
  Receipt Date: 20121218
  Transmission Date: 20130627
  Serious: No
  Sender: FDA-Public Use
  Company Number: US-BRISTOL-MYERS SQUIBB COMPANY-16454811

PATIENT
  Sex: Female

DRUGS (5)
  1. ABILIFY TABS [Suspect]
     Dosage: Started as 2mg then received 10mg for 2 weeks
  2. SEROQUEL [Concomitant]
  3. GABAPENTIN [Concomitant]
  4. ZOLOFT [Concomitant]
  5. CLONIDINE [Concomitant]

REACTIONS (3)
  - Thinking abnormal [Unknown]
  - Dyskinesia [Unknown]
  - Muscle twitching [Unknown]
